FAERS Safety Report 4350091-1 (Version None)
Quarter: 2004Q2

REPORT INFORMATION
  Report Type: 
  Country: None (occurrence: None)
  Receive Date: 20040429
  Receipt Date: 20031029
  Transmission Date: 20050107
  Serious: Yes (Death, Hospitalization)
  Sender: FDA-Public Use
  Company Number: US-GLAXOSMITHKLINE-B0313906A

PATIENT
  Age: 53 Year
  Sex: Male

DRUGS (5)
  1. WELLBUTRIN [Suspect]
     Route: 048
  2. INSULIN [Suspect]
     Route: 051
  3. CITALOPRAM [Suspect]
     Route: 065
  4. TRAZODONE HCL [Suspect]
     Route: 065
  5. VECURONIUM BROMIDE [Concomitant]
     Route: 065

REACTIONS (9)
  - AGGRESSION [None]
  - CARDIO-RESPIRATORY ARREST [None]
  - COMPLETED SUICIDE [None]
  - CONVULSION [None]
  - DECEREBRATION [None]
  - DEPRESSED LEVEL OF CONSCIOUSNESS [None]
  - HYPERTENSION [None]
  - HYPERTHERMIA [None]
  - TACHYCARDIA [None]
